FAERS Safety Report 5763790-1 (Version None)
Quarter: 2008Q2

REPORT INFORMATION
  Report Type: 
  Country: None (occurrence: None)
  Receive Date: 20080602
  Receipt Date: 20070918
  Transmission Date: 20081010
  Serious: Yes (Other)
  Sender: FDA-Public Use
  Company Number: 161674USA

PATIENT
  Age: 28 Year
  Sex: Female

DRUGS (2)
  1. CEFALEXIN CAPSULES (CEFALEXIN) [Suspect]
     Indication: BLISTER
     Dosage: 2000 MG (500 MG,4 IN 1 D),ORAL
     Route: 048
     Dates: start: 20070807, end: 20070808
  2. CREAM E45 [Suspect]
     Indication: BLISTER

REACTIONS (4)
  - CHOKING SENSATION [None]
  - COUGH [None]
  - DYSPNOEA [None]
  - THROAT TIGHTNESS [None]
